FAERS Safety Report 5045688-X (Version None)
Quarter: 2006Q3

REPORT INFORMATION
  Report Type: 
  Country: None (occurrence: None)
  Receive Date: 20060707
  Receipt Date: 20060703
  Transmission Date: 20061208
  Serious: Yes (Other)
  Sender: FDA-Public Use
  Company Number: AU-MERCK-0607AUS00010

PATIENT
  Age: 73 Year
  Sex: Male

DRUGS (8)
  1. FOSAMAX [Suspect]
     Route: 048
  2. BUDESONIDE [Suspect]
     Indication: RESPIRATORY DISORDER
     Route: 065
  3. FLUTICASONE PROPIONATE [Suspect]
     Indication: RESPIRATORY DISORDER
     Route: 065
  4. ALBUTEROL SULFATE [Suspect]
     Indication: RESPIRATORY DISORDER
     Route: 065
  5. IPRATROPIUM BROMIDE [Suspect]
     Indication: RESPIRATORY DISORDER
     Route: 065
  6. VITAMINS (UNSPECIFIED) [Suspect]
     Route: 065
  7. THEOPHYLLINE [Suspect]
     Indication: RESPIRATORY DISORDER
     Route: 065
  8. PREDNISOLONE [Suspect]
     Indication: RESPIRATORY DISORDER
     Route: 065

REACTIONS (1)
  - OSTEONECROSIS [None]
